FAERS Safety Report 8111234-7 (Version None)
Quarter: 2012Q1

REPORT INFORMATION
  Report Type: 
  Country: None (occurrence: None)
  Receive Date: 20120203
  Receipt Date: 20110707
  Transmission Date: 20120608
  Serious: Yes (Other)
  Sender: FDA-Public Use
  Company Number: US-GLAXOSMITHKLINE-A0935336A

PATIENT
  Age: 30 Year
  Sex: Female

DRUGS (3)
  1. ZYPREXA [Concomitant]
     Indication: BIPOLAR DISORDER
     Dosage: 2.5MG PER DAY
     Route: 048
     Dates: start: 20100901
  2. LAMICTAL [Suspect]
     Indication: BIPOLAR DISORDER
     Dosage: 200MG PER DAY
     Route: 048
     Dates: start: 20101202, end: 20110402
  3. LITHIUM CARBONATE [Concomitant]
     Indication: BIPOLAR DISORDER
     Dosage: 900MG PER DAY
     Route: 048
     Dates: start: 20100801

REACTIONS (1)
  - RASH PRURITIC [None]
